FAERS Safety Report 25565680 (Version 2)
Quarter: 2025Q3

REPORT INFORMATION
  Report Type: Spontaneous
  Country: US (occurrence: US)
  Receive Date: 20250716
  Receipt Date: 20250718
  Transmission Date: 20251021
  Serious: No
  Sender: NOVO NORDISK
  Company Number: US-NOVOPROD-1363316

PATIENT
  Age: 48 Year
  Sex: Female

DRUGS (3)
  1. OZEMPIC [Suspect]
     Active Substance: SEMAGLUTIDE
     Indication: Product used for unknown indication
  2. WEGOVY [Suspect]
     Active Substance: SEMAGLUTIDE
     Indication: Product used for unknown indication
     Route: 058
  3. DUPIXENT [Suspect]
     Active Substance: DUPILUMAB
     Indication: Asthma
     Route: 058
     Dates: start: 20220506

REACTIONS (10)
  - Throat irritation [Unknown]
  - Sleep disorder [Unknown]
  - Skin depigmentation [Unknown]
  - Skin swelling [Unknown]
  - Scratch [Unknown]
  - Erythema [Unknown]
  - Weight decreased [Unknown]
  - Injection site pruritus [Unknown]
  - Constipation [Recovered/Resolved]
  - Product use issue [Unknown]
